FAERS Safety Report 25220890 (Version 4)
Quarter: 2025Q4

REPORT INFORMATION
  Report Type: Report from Study
  Country: EU (occurrence: EU)
  Receive Date: 20250421
  Receipt Date: 20251210
  Transmission Date: 20260117
  Serious: Yes (Hospitalization, Other)
  Sender: ABBVIE
  Company Number: EU-ABBVIE-6234176

PATIENT
  Age: 76 Year
  Sex: Female

DRUGS (8)
  1. CARBIDOPA\LEVODOPA [Suspect]
     Active Substance: CARBIDOPA\LEVODOPA
     Indication: Parkinson^s disease
     Dosage: 20 MG + 5 MG?FREQUENCY: MORN:4.5;MAIN:3.1EXT:1?LAST ADMIN DATE: 2025
     Route: 050
     Dates: start: 20250413
  2. CARBIDOPA\LEVODOPA [Suspect]
     Active Substance: CARBIDOPA\LEVODOPA
     Dosage: 20 MG + 5 MG?FREQUENCY: MORN:4.5;MAIN:2.8EXT:1
     Route: 050
     Dates: start: 2025, end: 20250413
  3. CARBIDOPA\LEVODOPA [Suspect]
     Active Substance: CARBIDOPA\LEVODOPA
     Dosage: 20 MG + 5 MG?FREQUENCY: MORN:4;MAIN:1.7;EXT:1?STOP DATE: UNKNOWN
     Route: 050
     Dates: start: 20210630
  4. CARBIDOPA\LEVODOPA [Suspect]
     Active Substance: CARBIDOPA\LEVODOPA
     Dosage: 20 MG + 5 MG?LAST ADMIN DATE: MAY 2025
     Route: 050
     Dates: start: 2025
  5. CARBIDOPA\LEVODOPA [Suspect]
     Active Substance: CARBIDOPA\LEVODOPA
     Dosage: CURRENT DOSES: MORNING: 8CC; CONTINUOUS: 3.4CC/H; EXTRA DOSE: 1CC?20 MG + 5 MG
     Route: 050
     Dates: start: 202505
  6. ATORVASTATIN [Concomitant]
     Active Substance: ATORVASTATIN
     Indication: Product used for unknown indication
     Dosage: START DATE: BEFORE DUODOPA
  7. QUETIAPINE [Concomitant]
     Active Substance: QUETIAPINE
     Indication: Product used for unknown indication
     Dosage: START DATE: BEFORE DUODOPA
  8. REQUIP [Concomitant]
     Active Substance: ROPINIROLE HYDROCHLORIDE
     Indication: Parkinson^s disease
     Dosage: 16 TABLET?8TAB IN THE MORNING + 8 TAB AT NIGHT?START DATE: BEFORE DUODOPA

REACTIONS (11)
  - Femoral neck fracture [Recovered/Resolved]
  - Bradykinesia [Not Recovered/Not Resolved]
  - Off label use [Not Recovered/Not Resolved]
  - Fractured sacrum [Recovered/Resolved]
  - Gait disturbance [Not Recovered/Not Resolved]
  - Fall [Recovered/Resolved]
  - Device connection issue [Recovered/Resolved]
  - Fracture pain [Recovered/Resolved]
  - Device issue [Unknown]
  - Femur fracture [Recovered/Resolved]
  - Fall [Recovered/Resolved]

NARRATIVE: CASE EVENT DATE: 20250101
